FAERS Safety Report 7603926-0 (Version None)
Quarter: 2011Q3

REPORT INFORMATION
  Report Type: 
  Country: None (occurrence: None)
  Receive Date: 20110712
  Receipt Date: 20110629
  Transmission Date: 20111222
  Serious: Yes (Other)
  Sender: FDA-Public Use
  Company Number: GB-ROCHE-771488

PATIENT
  Age: 72 Year
  Sex: Female

DRUGS (4)
  1. STEROID NOS [Suspect]
     Indication: VASCULITIS
     Route: 065
  2. CORTICOSTEROID NOS [Concomitant]
     Route: 065
  3. MYCOPHENOLATE MEFETIL [Suspect]
     Indication: VASCULITIS
     Dosage: DRUG WITHDRAWN.
     Route: 048
  4. STEROID NOS [Suspect]
     Route: 065

REACTIONS (3)
  - PROTEINURIA [None]
  - VIRAEMIA [None]
  - CYTOMEGALOVIRUS COLITIS [None]
